FAERS Safety Report 12457206 (Version 2)
Quarter: 2016Q2

REPORT INFORMATION
  Report Type: Spontaneous
  Country: IT (occurrence: IT)
  Receive Date: 20160610
  Receipt Date: 20160613
  Transmission Date: 20160815
  Serious: Yes (Other)
  Sender: FDA-Public Use
  Company Number: IT-BAYER-2016-071402

PATIENT
  Age: 26 Year
  Sex: Female

DRUGS (1)
  1. CIPROFLOXACIN MONOHYDROCHLORIDE [Suspect]
     Active Substance: CIPROFLOXACIN
     Indication: CYSTITIS
     Dosage: DAILY DOSE 500 MG
     Dates: start: 20160203, end: 20160204

REACTIONS (4)
  - Rash [Recovering/Resolving]
  - Arthralgia [Recovering/Resolving]
  - Muscle tightness [Recovering/Resolving]
  - Pruritus [Recovering/Resolving]

NARRATIVE: CASE EVENT DATE: 20160203
